FAERS Safety Report 8621293-0 (Version None)
Quarter: 2012Q3

REPORT INFORMATION
  Report Type: 
  Country: None (occurrence: None)
  Receive Date: 20120824
  Receipt Date: 20120821
  Transmission Date: 20120928
  Serious: Yes (Hospitalization)
  Sender: FDA-Public Use
  Company Number: DE-009507513-1208DEU008406

PATIENT

DRUGS (16)
  1. SIMVASTATIN [Suspect]
     Indication: TYPE 2 DIABETES MELLITUS
     Dosage: UNK
     Route: 048
     Dates: start: 20110214
  2. SIMVASTATIN [Suspect]
     Indication: TYPE 2 DIABETES MELLITUS
     Dosage: UNK
     Route: 048
     Dates: start: 20110214
  3. TORSEMIDE [Concomitant]
     Dosage: 10
  4. METOPROLOL TARTRATE [Concomitant]
     Dosage: 95
  5. METFORMIN HCL [Suspect]
     Indication: TYPE 2 DIABETES MELLITUS
     Dosage: UNK
     Route: 048
     Dates: start: 20110214
  6. ASPIRIN [Concomitant]
     Indication: PLATELET AGGREGATION INHIBITION
     Dosage: 100
  7. VALSARTAN [Concomitant]
     Indication: HYPERTENSION
     Dosage: 160
  8. PLACEBO [Suspect]
     Indication: TYPE 2 DIABETES MELLITUS
     Dosage: UNK
     Route: 048
     Dates: start: 20110214
  9. LERCANIDIPINE [Concomitant]
     Indication: BLOOD CALCIUM
     Dosage: 10
  10. CYNT (SIMVASTATIN) [Concomitant]
     Indication: BLOOD CALCIUM
     Dosage: 0.3
  11. EZETIMIBE [Concomitant]
     Dosage: 10/20
  12. PROVAS MAXX [Concomitant]
     Indication: HYPERTENSION
     Dosage: 160/25
  13. SITAGLIPTIN PHOSPHATE [Suspect]
     Indication: TYPE 2 DIABETES MELLITUS
     Dosage: UNK
     Route: 048
     Dates: start: 20110214
  14. BLINDED INSULIN [Suspect]
     Indication: TYPE 2 DIABETES MELLITUS
     Dosage: UNK
     Route: 048
     Dates: start: 20110214
  15. PIOGLITAZONE HYDROCHLORIDE [Suspect]
     Indication: TYPE 2 DIABETES MELLITUS
     Dosage: UNK
     Route: 048
     Dates: start: 20110214
  16. ALLOPURINOL [Concomitant]
     Indication: BLOOD URIC ACID
     Dosage: 0.5

REACTIONS (1)
  - SCIATICA [None]
